FAERS Safety Report 7064374-8 (Version None)
Quarter: 2010Q4

REPORT INFORMATION
  Report Type: 
  Country: None (occurrence: None)
  Receive Date: 20101027
  Receipt Date: 20101015
  Transmission Date: 20110411
  Serious: Yes (Hospitalization, Other)
  Sender: FDA-Public Use
  Company Number: NO-BRISTOL-MYERS SQUIBB COMPANY-15335672

PATIENT
  Age: 44 Year
  Sex: Female

DRUGS (2)
  1. ORENCIA [Suspect]
     Indication: RHEUMATOID ARTHRITIS
     Dates: start: 20091015, end: 20100721
  2. METHOTREXATE [Suspect]

REACTIONS (4)
  - ENDOCARDITIS ENTEROCOCCAL [None]
  - PNEUMONIA [None]
  - PYELONEPHRITIS [None]
  - RENAL INFARCT [None]
